FAERS Safety Report 23354696 (Version 3)
Quarter: 2024Q2

REPORT INFORMATION
  Report Type: Spontaneous
  Country: US (occurrence: US)
  Receive Date: 20240101
  Receipt Date: 20240619
  Transmission Date: 20240716
  Serious: No
  Sender: FDA-Public Use
  Company Number: US-BoehringerIngelheim-2024-BI-000010

PATIENT
  Sex: Male

DRUGS (1)
  1. OFEV [Suspect]
     Active Substance: NINTEDANIB
     Indication: Product used for unknown indication

REACTIONS (7)
  - Feeling abnormal [Unknown]
  - Hernia [Unknown]
  - Depressed mood [Unknown]
  - Illness [Unknown]
  - Cough [Unknown]
  - Dyspnoea [Unknown]
  - General physical health deterioration [Unknown]
